FAERS Safety Report 11486478 (Version 1)
Quarter: 2015Q3

REPORT INFORMATION
  Report Type: Spontaneous
  Country: FR (occurrence: FR)
  Receive Date: 20150910
  Receipt Date: 20150910
  Transmission Date: 20151125
  Serious: Yes (Other)
  Sender: FDA-Public Use
  Company Number: FR-ROCHE-1631694

PATIENT
  Age: 81 Year
  Sex: Male

DRUGS (3)
  1. CELLCEPT [Suspect]
     Active Substance: MYCOPHENOLATE MOFETIL\MYCOPHENOLATE MOFETIL HYDROCHLORIDE
     Indication: MUSCULAR WEAKNESS
     Route: 048
     Dates: start: 201412, end: 20141215
  2. MABTHERA [Suspect]
     Active Substance: RITUXIMAB
     Indication: MUSCULAR WEAKNESS
     Dosage: ONGOING TREATMENT
     Route: 041
     Dates: start: 201501
  3. IMUREL [Suspect]
     Active Substance: AZATHIOPRINE SODIUM
     Indication: MUSCULAR WEAKNESS
     Route: 048
     Dates: start: 201105, end: 201412

REACTIONS (1)
  - Benign renal neoplasm [Recovered/Resolved]

NARRATIVE: CASE EVENT DATE: 20150116
